FAERS Safety Report 12967824 (Version 1)
Quarter: 2016Q4

REPORT INFORMATION
  Report Type: Spontaneous
  Country: FR (occurrence: FR)
  Receive Date: 20161123
  Receipt Date: 20161123
  Transmission Date: 20170207
  Serious: Yes (Hospitalization)
  Sender: FDA-Public Use
  Company Number: FR-ELI_LILLY_AND_COMPANY-FR201611006513

PATIENT
  Age: 63 Year
  Sex: Female
  Weight: 44 kg

DRUGS (10)
  1. LYSODREN [Suspect]
     Active Substance: MITOTANE
     Dosage: 2000 MG, QD
     Route: 048
  2. CACIT VITAMINE D3 [Concomitant]
     Active Substance: CALCIUM CARBONATE\CHOLECALCIFEROL
     Indication: PRODUCT USED FOR UNKNOWN INDICATION
     Dosage: UNK, UNKNOWN
     Route: 065
  3. PROZAC [Suspect]
     Active Substance: FLUOXETINE HYDROCHLORIDE
     Indication: DEPRESSION
     Dosage: 20 MG, BID
     Route: 048
     Dates: start: 201605, end: 20160915
  4. FLUCORTAC [Concomitant]
     Active Substance: FLUDROCORTISONE ACETATE
     Indication: ADRENAL DISORDER
     Dosage: 50 UG, QD
     Route: 048
     Dates: start: 201507
  5. LYSODREN [Suspect]
     Active Substance: MITOTANE
     Indication: ADRENOCORTICAL CARCINOMA
     Dosage: 1500 MG, BID
     Route: 048
     Dates: start: 201506
  6. LEVOTHYROX [Concomitant]
     Active Substance: LEVOTHYROXINE
     Indication: THYROXINE DECREASED
     Dosage: 25 UG, QD
     Route: 048
     Dates: start: 201601
  7. HYDROCORTISONE                     /00140401/ [Concomitant]
     Dosage: 80 MG, QD
     Route: 065
     Dates: start: 201601
  8. HYDROCORTISONE                     /00140401/ [Concomitant]
     Indication: ADRENAL DISORDER
     Dosage: 40 MG, QD
     Route: 065
  9. LYSODREN [Suspect]
     Active Substance: MITOTANE
     Dosage: 2500 MG, QD
     Route: 048
  10. HYDROCORTISONE                     /00140401/ [Concomitant]
     Dosage: 70 MG, QD
     Route: 065
     Dates: start: 201601

REACTIONS (5)
  - Confusional state [Recovered/Resolved]
  - Disorientation [Recovered/Resolved]
  - Hyponatraemia [Recovered/Resolved]
  - Agitation [Recovered/Resolved]
  - Abnormal behaviour [Recovered/Resolved]

NARRATIVE: CASE EVENT DATE: 20160903
